FAERS Safety Report 6134849-4 (Version None)
Quarter: 2009Q1

REPORT INFORMATION
  Report Type: 
  Country: None (occurrence: None)
  Receive Date: 20090325
  Receipt Date: 20090316
  Transmission Date: 20090719
  Serious: Yes (Death)
  Sender: FDA-Public Use
  Company Number: INDAB-09-0031

PATIENT
  Age: 44 Year
  Sex: Female

DRUGS (3)
  1. ABRAXANE [Suspect]
     Indication: BREAST CANCER METASTATIC
     Dosage: TOTAL DOSE 470 MG (260 MG/M2), INTRAVENOUS
     Route: 042
     Dates: start: 20090108, end: 20090108
  2. ZOMETA [Concomitant]
  3. NEULASTA [Concomitant]

REACTIONS (7)
  - BONE PAIN [None]
  - ESCHERICHIA SEPSIS [None]
  - GINGIVAL BLEEDING [None]
  - HAEMATOTOXICITY [None]
  - HEADACHE [None]
  - MOUTH HAEMORRHAGE [None]
  - PAIN [None]
